FAERS Safety Report 26121182 (Version 1)
Quarter: 2025Q4

REPORT INFORMATION
  Report Type: Spontaneous
  Country: US (occurrence: US)
  Receive Date: 20251204
  Receipt Date: 20251204
  Transmission Date: 20260117
  Serious: No
  Sender: CSL BEHRING
  Company Number: US-CSL-12419

PATIENT
  Sex: Male

DRUGS (1)
  1. PRIVIGEN [Suspect]
     Active Substance: HUMAN IMMUNOGLOBULIN G
     Dosage: UNK
     Route: 065

REACTIONS (4)
  - Poor venous access [Unknown]
  - Product container issue [Unknown]
  - Product dose omission in error [Unknown]
  - Product contamination [Unknown]

NARRATIVE: CASE EVENT DATE: 20251118
